FAERS Safety Report 9897178 (Version 3)
Quarter: 2014Q1

REPORT INFORMATION
  Report Type: Spontaneous
  Country: GB (occurrence: GB)
  Receive Date: 20140214
  Receipt Date: 20140328
  Transmission Date: 20141002
  Serious: Yes (Disabling, Other)
  Sender: FDA-Public Use
  Company Number: GB-AMGEN-GBRSP2014009591

PATIENT
  Age: 47 Year
  Sex: Female
  Weight: 76.4 kg

DRUGS (15)
  1. XGEVA [Suspect]
     Indication: BREAST CANCER METASTATIC
     Dosage: 120 MG, Q4WK
     Route: 058
     Dates: start: 20140108, end: 20140108
  2. CAPECITABINE [Suspect]
     Indication: BREAST CANCER METASTATIC
     Dosage: 2300 MG, BID
     Route: 048
     Dates: start: 20140108
  3. ACIDEX                             /01521901/ [Concomitant]
     Indication: DYSPEPSIA
     Dosage: UNK
     Dates: start: 20131008
  4. ADCAL D3 [Concomitant]
     Dosage: UNK
     Route: 065
     Dates: start: 20140108
  5. CITALOPRAM HYDROBROMIDE [Concomitant]
     Indication: DEPRESSION
     Dosage: UNK
     Route: 065
     Dates: start: 20131223
  6. CO-CODAMOL [Concomitant]
     Indication: ANALGESIC THERAPY
     Dosage: UNK
     Route: 065
     Dates: start: 20131106
  7. DEXAMETHASONE [Concomitant]
     Dosage: UNK
     Route: 065
     Dates: start: 20140115
  8. DIAZEPAM [Concomitant]
     Indication: ANXIETY
     Dosage: UNK
     Route: 065
     Dates: start: 20131223
  9. EVOREL CONTI [Concomitant]
     Indication: HORMONE REPLACEMENT THERAPY
     Dosage: UNK
     Route: 065
     Dates: start: 20131223
  10. LIDOCAINE [Concomitant]
     Indication: PAIN
  11. LORAZEPAM [Concomitant]
  12. MATRIFEN [Concomitant]
     Indication: PAIN
     Dosage: UNK
     Dates: start: 20131223, end: 20140107
  13. OMEPRAZOLE [Concomitant]
  14. PARACETAMOL [Concomitant]
  15. SODIUM PICOSULFATE [Concomitant]

REACTIONS (7)
  - Back pain [Recovered/Resolved]
  - Pain [Recovered/Resolved]
  - Dyskinesia [Recovered/Resolved]
  - Pain in extremity [Recovered/Resolved]
  - Fatigue [Recovered/Resolved]
  - Asthenia [Recovered/Resolved]
  - Bone pain [Recovered/Resolved]
